FAERS Safety Report 23812822 (Version 1)
Quarter: 2024Q2

REPORT INFORMATION
  Report Type: Spontaneous
  Country: GB (occurrence: GB)
  Receive Date: 20240503
  Receipt Date: 20240503
  Transmission Date: 20240716
  Serious: Yes (Other)
  Sender: FDA-Public Use
  Company Number: GB-MHRA-TPP24386619C8356435YC1712561907794

PATIENT
  Age: 82 Year
  Sex: Female
  Weight: 48 kg

DRUGS (23)
  1. AZITHROMYCIN ANHYDROUS [Suspect]
     Active Substance: AZITHROMYCIN ANHYDROUS
     Indication: Product used for unknown indication
     Dosage: 250 MILLIGRAM, 3 TIMEA A WEEKS (ONE TO BE TAKEN EVERY MONDAY, WEDNESDAY + FRIDAY)
     Route: 065
     Dates: start: 20240105
  2. AMITRIPTYLINE HYDROCHLORIDE [Concomitant]
     Active Substance: AMITRIPTYLINE HYDROCHLORIDE
     Indication: Product used for unknown indication
     Dosage: 1 DOSAGE FORM, ONCE A DAY (EACH NIGHT)
     Route: 065
     Dates: start: 20231220
  3. ATORVASTATIN [Concomitant]
     Active Substance: ATORVASTATIN
     Indication: Product used for unknown indication
     Dosage: 1 DOSAGE FORM, ONCE A DAY (EACH NIGHT)
     Route: 065
     Dates: start: 20231220
  4. CARBOCYSTEINE [Concomitant]
     Active Substance: CARBOCYSTEINE
     Indication: Product used for unknown indication
     Dosage: 2 DOSAGE FORM, 3 TIMES A DAY (REVIEW IN 8 WEEKS)
     Route: 065
     Dates: start: 20240227
  5. CHLORAMPHENICOL [Concomitant]
     Active Substance: CHLORAMPHENICOL
     Indication: Product used for unknown indication
     Dosage: 2 DOSAGE FORM (PUT ONE DROP INTO THE AFFECTED EYE(S) EVERY 2 H...)
     Route: 065
     Dates: start: 20240404
  6. CHLORHEXIDINE GLUCONATE [Concomitant]
     Active Substance: CHLORHEXIDINE GLUCONATE
     Indication: Product used for unknown indication
     Dosage: UNK (RINSE THE MOUTH WITH 10ML FOR ABOUT 1 MINUTE TW...)
     Route: 065
     Dates: start: 20240110
  7. CIPROFLOXACIN [Concomitant]
     Active Substance: CIPROFLOXACIN
     Indication: Product used for unknown indication
     Dosage: 1 DOSAGE FORM, TWO TIMES A DAY (FOR TWO WEEKS)
     Route: 065
     Dates: start: 20240304
  8. CLOPIDOGREL [Concomitant]
     Active Substance: CLOPIDOGREL BISULFATE
     Indication: Product used for unknown indication
     Dosage: 1 DOSAGE FORM, ONCE A DAY (EACH MORNING AFTER FOOD)
     Route: 065
     Dates: start: 20231220
  9. COLISTIMETHATE [Concomitant]
     Active Substance: COLISTIMETHATE SODIUM
     Indication: Product used for unknown indication
     Dosage: UNK (FOR NEBULISATION TWICE DAILY AS DIRECTED)
     Route: 065
     Dates: start: 20240304
  10. Colomycin [Concomitant]
     Indication: Product used for unknown indication
     Dosage: UNK UNK, AS DIRECTED
     Route: 065
     Dates: start: 20240228
  11. FERROUS SULFATE [Concomitant]
     Active Substance: FERROUS SULFATE
     Indication: Product used for unknown indication
     Dosage: 1 DOSAGE FORM, ONCE A DAY (AFTER FOOD)
     Route: 065
     Dates: start: 20240402
  12. BECLOMETHASONE\FORMOTEROL [Concomitant]
     Active Substance: BECLOMETHASONE\FORMOTEROL
     Indication: Product used for unknown indication
     Dosage: 2 DOSAGE FORM, TWO TIMES A DAY
     Route: 055
     Dates: start: 20231219
  13. GABAPENTIN [Concomitant]
     Active Substance: GABAPENTIN
     Indication: Product used for unknown indication
     Dosage: 1 DOSAGE FORM, 3 TIMES A DAY
     Route: 065
     Dates: start: 20231220
  14. Hydromol [Concomitant]
     Indication: Product used for unknown indication
     Dosage: UNK (APPLY TO SKIN FREQUENTLY AND LIBERALLY, AS OFTE...)
     Route: 065
     Dates: start: 20230719
  15. Lactulose AGD [Concomitant]
     Indication: Product used for unknown indication
     Dosage: 2 DOSAGE FORM
     Route: 065
     Dates: start: 20240403
  16. LANSOPRAZOLE [Concomitant]
     Active Substance: LANSOPRAZOLE
     Indication: Product used for unknown indication
     Dosage: 1 DOSAGE FORM, ONCE A DAY (EVERY MORNING)
     Route: 065
     Dates: start: 20231220
  17. POLYETHYLENE GLYCOL 3350\POTASSIUM CHLORIDE\SODIUM BICARBONATE\SODIUM [Concomitant]
     Active Substance: POLYETHYLENE GLYCOL 3350\POTASSIUM CHLORIDE\SODIUM BICARBONATE\SODIUM CHLORIDE
     Indication: Product used for unknown indication
     Dosage: UNK (TAKE ONE TO TWO SACHETS DISSOLVED IN WATER DAIL...)
     Route: 065
     Dates: start: 20231005
  18. MOMETASONE [Concomitant]
     Active Substance: MOMETASONE
     Indication: Product used for unknown indication
     Dosage: 2 DOSAGE FORM, TWO TIMES A DAY (IN EACH NOSTRIL. ONCE SYMP)
     Route: 065
     Dates: start: 20231124
  19. MONTELUKAST [Concomitant]
     Active Substance: MONTELUKAST SODIUM
     Indication: Product used for unknown indication
     Dosage: 1 DOSAGE FORM, ONCE A DAY (EACH EVENING)
     Route: 065
     Dates: start: 20231220
  20. ACETAMINOPHEN [Concomitant]
     Active Substance: ACETAMINOPHEN
     Indication: Product used for unknown indication
     Dosage: UNK (TAKE 1 OR 2 TABLETS EVERY 4 TO 6 HOURS WHEN REQ...)
     Route: 065
     Dates: start: 20240404
  21. ALBUTEROL [Concomitant]
     Active Substance: ALBUTEROL
     Indication: Product used for unknown indication
     Dosage: UNK (1 OR 2 PUFFS AS A SINGLE DOSE. CAN BE REPEATED ...)
     Route: 065
     Dates: start: 20240304
  22. SODIUM CHLORIDE [Concomitant]
     Active Substance: SODIUM CHLORIDE
     Indication: Product used for unknown indication
     Dosage: UNK (USE 2 VIALS (5MLS) FOR DILUTION OF NEBULISTION AS DIRECTED)
     Route: 065
     Dates: start: 20240304
  23. SPIRIVA [Concomitant]
     Active Substance: TIOTROPIUM BROMIDE MONOHYDRATE
     Indication: Product used for unknown indication
     Dosage: 2 DOSAGE FORM, ONCE A DAY ((5 MICROGR)
     Route: 055
     Dates: start: 20230504

REACTIONS (1)
  - Lip swelling [Recovering/Resolving]
